FAERS Safety Report 8572939-7 (Version None)
Quarter: 2012Q3

REPORT INFORMATION
  Report Type: 
  Country: None (occurrence: None)
  Receive Date: 20120806
  Receipt Date: 20120316
  Transmission Date: 20120928
  Serious: No
  Sender: FDA-Public Use
  Company Number: US-009507513-2012SP009974

PATIENT

DRUGS (9)
  1. PROTONIX [Concomitant]
     Indication: DYSPEPSIA
     Dosage: 40 MG, UNKNOWN
  2. METRONIDAZOLE [Concomitant]
     Indication: DIVERTICULITIS
     Dosage: 500 MG, UNKNOWN
  3. AFRIN [Suspect]
     Indication: UPPER RESPIRATORY TRACT CONGESTION
     Dosage: UNK UNK, UNKNOWN
     Route: 045
     Dates: start: 20110201
  4. METFORMIN HYDROCHLORIDE [Concomitant]
     Indication: DIABETES MELLITUS
     Dosage: 500 MG, QD
  5. SIMVASTATIN [Concomitant]
     Indication: BLOOD CHOLESTEROL
     Dosage: 40 MG, UNKNOWN
  6. ASPIRIN [Concomitant]
     Indication: UNEVALUABLE EVENT
     Dosage: 81 MG, UNKNOWN
  7. CIPROFLOXACIN [Concomitant]
     Indication: DIVERTICULITIS
     Dosage: 500 MG, UNKNOWN
  8. AFRIN [Suspect]
     Dosage: UNK UNK, UNKNOWN
     Route: 045
     Dates: start: 20111201
  9. AFRIN [Suspect]
     Indication: NASOPHARYNGITIS
     Dosage: UNK UNK, UNKNOWN
     Route: 045
     Dates: start: 20101201

REACTIONS (2)
  - ABDOMINAL PAIN UPPER [None]
  - CONDITION AGGRAVATED [None]
